FAERS Safety Report 8090475-1 (Version None)
Quarter: 2012Q1

REPORT INFORMATION
  Report Type: 
  Country: None (occurrence: None)
  Receive Date: 20120129
  Receipt Date: 20111121
  Transmission Date: 20120608
  Serious: No
  Sender: FDA-Public Use
  Company Number: US-ABBOTT-11P-163-0876269-00

PATIENT
  Sex: Female
  Weight: 74.456 kg

DRUGS (3)
  1. HUMIRA [Suspect]
     Indication: RHEUMATOID ARTHRITIS
     Route: 058
     Dates: start: 20030601, end: 20110401
  2. HUMIRA [Suspect]
     Route: 058
     Dates: start: 20110401
  3. METHOTREXATE [Concomitant]
     Indication: RHEUMATOID ARTHRITIS

REACTIONS (3)
  - FINGER DEFORMITY [None]
  - PAIN IN EXTREMITY [None]
  - NODULE [None]
